FAERS Safety Report 14670403 (Version 1)
Quarter: 2018Q1

REPORT INFORMATION
  Report Type: Spontaneous
  Country: US (occurrence: US)
  Receive Date: 20180322
  Receipt Date: 20180322
  Transmission Date: 20180509
  Serious: Yes (Hospitalization)
  Sender: FDA-Public Use
  Company Number: US-TEVA-2018-US-873077

PATIENT
  Age: 53 Year
  Sex: Male

DRUGS (1)
  1. ENALAPRIL [Suspect]
     Active Substance: ENALAPRIL
     Indication: HYPERTENSION
     Route: 065

REACTIONS (1)
  - Angioedema [Recovering/Resolving]
